FAERS Safety Report 20954038 (Version 3)
Quarter: 2022Q3

REPORT INFORMATION
  Report Type: Spontaneous
  Country: EG (occurrence: EG)
  Receive Date: 20220614
  Receipt Date: 20220721
  Transmission Date: 20221027
  Serious: Yes (Life-Threatening, Other)
  Sender: FDA-Public Use
  Company Number: EG-NOVOPROD-926884

PATIENT
  Age: 60 Year
  Sex: Female
  Weight: 100 kg

DRUGS (4)
  1. INSULIN HUMAN [Suspect]
     Active Substance: INSULIN HUMAN
     Indication: Diabetes mellitus
     Dosage: 30 IU, BID (30IU 2AM /30 IU PM)
     Route: 058
  2. AVIVAVASC [Concomitant]
     Indication: Hypertension
     Dosage: 10/160 MG
  3. BISOPROLOL FUMARATE [Concomitant]
     Active Substance: BISOPROLOL FUMARATE
     Indication: Hypertension
     Dosage: 10 MG
  4. NEUROVIT [CYANOCOBALAMIN;OCTOTIAMINE;PYRIDOXINE HYDROCHLORIDE;RIBOFLAV [Concomitant]
     Dosage: UNK

REACTIONS (2)
  - Coma [Recovered/Resolved]
  - Device breakage [Recovered/Resolved]
